FAERS Safety Report 13758717 (Version 2)
Quarter: 2017Q3

REPORT INFORMATION
  Report Type: Report from Study
  Country: VN (occurrence: VN)
  Receive Date: 20170717
  Receipt Date: 20170915
  Transmission Date: 20171127
  Serious: Yes (Death, Hospitalization, Other)
  Sender: FDA-Public Use
  Company Number: VN-ASTELLAS-2017US027703

PATIENT
  Age: 72 Year
  Sex: Female

DRUGS (2)
  1. ERLOTINIB [Suspect]
     Active Substance: ERLOTINIB
     Indication: LUNG NEOPLASM MALIGNANT
     Route: 048
     Dates: start: 201701
  2. ERLOTINIB [Suspect]
     Active Substance: ERLOTINIB
     Dosage: 100 MG, ONCE DAILY (TABLET OF 150 MG SPLIT TO HAVE THE DOSE OF 100 MG)
     Route: 048
     Dates: end: 20170827

REACTIONS (6)
  - Wrong technique in product usage process [Unknown]
  - Respiratory failure [Fatal]
  - Fatigue [Unknown]
  - Off label use [Unknown]
  - Paronychia [Recovering/Resolving]
  - Rash [Recovering/Resolving]

NARRATIVE: CASE EVENT DATE: 201708
